FAERS Safety Report 4835433-2 (Version None)
Quarter: 2005Q4

REPORT INFORMATION
  Report Type: 
  Country: None (occurrence: None)
  Receive Date: 20051122
  Receipt Date: 20051122
  Transmission Date: 20060501
  Serious: Yes (Hospitalization)
  Sender: FDA-Public Use
  Company Number: None

PATIENT
  Sex: Female

DRUGS (2)
  1. TAXOTERE [Suspect]
     Dosage: 17.5 MG/M2
  2. DOXIL [Suspect]
     Dosage: 10 MG /M2

REACTIONS (3)
  - HAEMATURIA [None]
  - PAIN [None]
  - PYREXIA [None]
